FAERS Safety Report 9012719 (Version 1)
Quarter: 2013Q1

REPORT INFORMATION
  Report Type: Spontaneous
  Country: GB (occurrence: GB)
  Receive Date: 20130114
  Receipt Date: 20130114
  Transmission Date: 20140127
  Serious: Yes (Other)
  Sender: FDA-Public Use
  Company Number: GB-TEVA-379907ISR

PATIENT
  Age: 80 Year
  Sex: Male
  Weight: 59.42 kg

DRUGS (9)
  1. SIMVASTATIN [Suspect]
     Indication: BLOOD CHOLESTEROL INCREASED
     Dosage: 40 MILLIGRAM DAILY; 40MG ONCE A DAY AT NIGHT
     Route: 048
     Dates: start: 20070427, end: 200808
  2. ATORVASTATIN [Suspect]
     Indication: BLOOD CHOLESTEROL INCREASED
     Route: 048
     Dates: start: 20110321, end: 20120726
  3. ROSUVASTATIN [Suspect]
     Indication: BLOOD CHOLESTEROL INCREASED
     Dosage: 10 MILLIGRAM DAILY; 10MG AT NIGHT DAILY
     Route: 048
     Dates: start: 20100818, end: 20101222
  4. EZETIMIBE [Suspect]
     Indication: BLOOD CHOLESTEROL INCREASED
     Dosage: 10 MILLIGRAM DAILY; 10MG AT NIGHT DAILY
     Route: 048
     Dates: start: 20120726, end: 20120815
  5. AMLODIPINE [Concomitant]
  6. LOSARTAN POTASSIUM [Concomitant]
  7. GLICLAZIDE [Concomitant]
  8. ASPIRIN [Concomitant]
  9. ALLOPURINOL [Concomitant]

REACTIONS (4)
  - Myalgia [Not Recovered/Not Resolved]
  - Muscle atrophy [Not Recovered/Not Resolved]
  - Arthralgia [Not Recovered/Not Resolved]
  - Weight decreased [Unknown]
